FAERS Safety Report 24624804 (Version 1)
Quarter: 2024Q4

REPORT INFORMATION
  Report Type: Spontaneous
  Country: JP (occurrence: JP)
  Receive Date: 20241115
  Receipt Date: 20241115
  Transmission Date: 20250115
  Serious: Yes (Other)
  Sender: ALEXION PHARMACEUTICALS
  Company Number: JP-ASTRAZENECA-240120790_012620_P_1

PATIENT
  Age: 53 Year

DRUGS (10)
  1. FULVESTRANT [Suspect]
     Active Substance: FULVESTRANT
     Indication: Breast cancer
     Dosage: DOSE UNKNOWN
  2. FULVESTRANT [Suspect]
     Active Substance: FULVESTRANT
     Dosage: DOSE UNKNOWN
  3. FULVESTRANT [Suspect]
     Active Substance: FULVESTRANT
     Dosage: DOSE UNKNOWN
  4. FULVESTRANT [Suspect]
     Active Substance: FULVESTRANT
     Dosage: DOSE UNKNOWN
  5. TRUQAP [Suspect]
     Active Substance: CAPIVASERTIB
     Indication: Breast cancer
     Dosage: FOUR CONSECUTIVE DAYS ON TREATMENT FOLLOWED BY THREE DAYS OFF TREATMENT
  6. TRUQAP [Suspect]
     Active Substance: CAPIVASERTIB
     Dosage: FOUR CONSECUTIVE DAYS ON TREATMENT FOLLOWED BY THREE DAYS OFF TREATMENT
  7. TRUQAP [Suspect]
     Active Substance: CAPIVASERTIB
     Dosage: FOUR CONSECUTIVE DAYS ON TREATMENT FOLLOWED BY THREE DAYS OFF TREATMENT
  8. TRUQAP [Suspect]
     Active Substance: CAPIVASERTIB
     Dosage: FOUR CONSECUTIVE DAYS ON TREATMENT FOLLOWED BY THREE DAYS OFF TREATMENT
  9. TRUQAP [Suspect]
     Active Substance: CAPIVASERTIB
     Dosage: 320 MILLIGRAM
  10. TRUQAP [Suspect]
     Active Substance: CAPIVASERTIB
     Dosage: 320 MILLIGRAM

REACTIONS (1)
  - Renal impairment [Recovered/Resolved]
